FAERS Safety Report 4307803-2 (Version None)
Quarter: 2004Q1

REPORT INFORMATION
  Report Type: 
  Country: None (occurrence: None)
  Receive Date: 20040217
  Receipt Date: 20040204
  Transmission Date: 20041129
  Serious: Yes (Hospitalization)
  Sender: FDA-Public Use
  Company Number: 601091

PATIENT
  Age: 52 Year
  Sex: Female
  Weight: 87.3 kg

DRUGS (33)
  1. POLYGAM S/D [Suspect]
     Indication: HYPOGAMMAGLOBULINAEMIA
     Dosage: 55 GM; Q3W; INTRAVENOUS
     Route: 042
     Dates: start: 20040202, end: 20040202
  2. SOLU-MEDROL [Concomitant]
  3. PREDNISONE [Concomitant]
  4. PLAQUENIL [Concomitant]
  5. VIOXX [Concomitant]
  6. TENORMIN [Concomitant]
  7. NORVASC [Concomitant]
  8. CARDURA [Concomitant]
  9. LASIX [Concomitant]
  10. OSCAL [Concomitant]
  11. MIACALCIN [Concomitant]
  12. NEURONTIN [Concomitant]
  13. OXYCONTIN [Concomitant]
  14. OXYCONTIN [Concomitant]
  15. SKELAXIN [Concomitant]
  16. VICODIN ES [Concomitant]
  17. ACIPHEX [Concomitant]
  18. PAXIL [Concomitant]
  19. REMERON [Concomitant]
  20. UREX [Concomitant]
  21. BACTRIM DS [Concomitant]
  22. DETROL [Concomitant]
  23. SYNTHROID [Concomitant]
  24. SINGULAIR [Concomitant]
  25. FLONASE [Concomitant]
  26. RITALIN [Concomitant]
  27. AMANTADINE HCL [Concomitant]
  28. VALTREX [Concomitant]
  29. CENTRIM [Concomitant]
  30. IRON SULFATETHIAMIN COMPOUND TAB [Concomitant]
  31. PREVACID [Concomitant]
  32. LOMOTIL [Concomitant]
  33. PHENERGAN [Concomitant]

REACTIONS (4)
  - APHASIA [None]
  - CEREBRAL ISCHAEMIA [None]
  - DYSPHASIA [None]
  - TRANSIENT ISCHAEMIC ATTACK [None]
